FAERS Safety Report 23811078 (Version 1)
Quarter: 2024Q2

REPORT INFORMATION
  Report Type: Spontaneous
  Country: US (occurrence: US)
  Receive Date: 20240502
  Receipt Date: 20240502
  Transmission Date: 20240716
  Serious: Yes (Other)
  Sender: FDA-Public Use
  Company Number: US-BEH-2024171410

PATIENT
  Sex: Female

DRUGS (1)
  1. HIZENTRA [Suspect]
     Active Substance: HUMAN IMMUNOGLOBULIN G
     Indication: Immunodeficiency common variable
     Dosage: 10 G, QW
     Route: 058
     Dates: start: 202202

REACTIONS (8)
  - Drug hypersensitivity [Unknown]
  - Pruritus [Unknown]
  - Dyspnoea [Unknown]
  - Infusion site erythema [Unknown]
  - Infusion site irritation [Unknown]
  - Infusion site swelling [Unknown]
  - Malabsorption from injection site [Unknown]
  - Injection site mass [Unknown]
